FAERS Safety Report 6552900-4 (Version None)
Quarter: 2010Q1

REPORT INFORMATION
  Report Type: 
  Country: None (occurrence: None)
  Receive Date: 20100122
  Receipt Date: 20100107
  Transmission Date: 20100710
  Serious: Yes (Death, Hospitalization)
  Sender: FDA-Public Use
  Company Number: B0625759A

PATIENT
  Age: 88 Year
  Sex: Male
  Weight: 71.8498 kg

DRUGS (6)
  1. PREDNISOLONE [Suspect]
     Indication: CHRONIC OBSTRUCTIVE PULMONARY DISEASE
     Dosage: ORAL
     Route: 048
  2. STEROID (FORMULATION UNKNOWN) (STEROID) [Suspect]
     Dosage: INTRAVENOUS
     Route: 042
  3. HYDROCORTISONE [Suspect]
  4. THEOPHYLLINE [Concomitant]
  5. AMOX.TRIHYD+POT.CLAVULAN. [Concomitant]
  6. BRONCHODILATOR [Concomitant]

REACTIONS (10)
  - ACUTE RESPIRATORY DISTRESS SYNDROME [None]
  - ACUTE RESPIRATORY FAILURE [None]
  - CONDITION AGGRAVATED [None]
  - DISEASE PROGRESSION [None]
  - ESCHERICHIA BACTERAEMIA [None]
  - KLEBSIELLA BACTERAEMIA [None]
  - LUNG INFILTRATION [None]
  - SEPTIC SHOCK [None]
  - SPUTUM CULTURE POSITIVE [None]
  - STRONGYLOIDIASIS [None]
